FAERS Safety Report 8951269 (Version 1)
Quarter: 2012Q4

REPORT INFORMATION
  Report Type: Report from Study
  Country: US (occurrence: US)
  Receive Date: 20121207
  Receipt Date: 20121207
  Transmission Date: 20130627
  Serious: Yes (Hospitalization)
  Sender: FDA-Public Use
  Company Number: US-ASTELLAS-2012US011783

PATIENT
  Sex: Female
  Weight: 59 kg

DRUGS (4)
  1. ERLOTINIB TABLET [Suspect]
     Indication: NON-SMALL CELL LUNG CANCER
     Dosage: 150 mg, Unknown/D
     Route: 048
     Dates: start: 201101
  2. ERLOTINIB TABLET [Suspect]
     Dosage: 150 mg, Unknown/D
     Route: 048
     Dates: start: 201106, end: 20110716
  3. ERLOTINIB TABLET [Suspect]
     Dosage: 150 mg, qod
     Route: 048
     Dates: start: 201107, end: 20110824
  4. LOVENOX [Concomitant]
     Dosage: UNK
     Route: 065

REACTIONS (14)
  - Subdural haematoma [Unknown]
  - Loss of consciousness [Unknown]
  - Rales [Unknown]
  - Chronic obstructive pulmonary disease [Unknown]
  - Hypogeusia [Not Recovered/Not Resolved]
  - Pneumonia [Unknown]
  - Asthenia [Unknown]
  - Dyspnoea [Unknown]
  - Nausea [Not Recovered/Not Resolved]
  - Vomiting [Not Recovered/Not Resolved]
  - Decreased appetite [Not Recovered/Not Resolved]
  - Weight decreased [Not Recovered/Not Resolved]
  - Diarrhoea [Not Recovered/Not Resolved]
  - Constipation [Not Recovered/Not Resolved]
